FAERS Safety Report 5099332-6 (Version None)
Quarter: 2006Q3

REPORT INFORMATION
  Report Type: 
  Country: None (occurrence: None)
  Receive Date: 20060726
  Receipt Date: 20060331
  Transmission Date: 20061208
  Serious: No
  Sender: FDA-Public Use
  Company Number: 012199

PATIENT
  Age: 36 Year
  Sex: Male

DRUGS (7)
  1. PRIALT [Suspect]
     Indication: POST LAMINECTOMY SYNDROME
     Dosage: SEE IMAGE
     Route: 037
     Dates: end: 20050713
  2. PRIALT [Suspect]
     Indication: POST LAMINECTOMY SYNDROME
     Dosage: SEE IMAGE
     Route: 037
     Dates: start: 20050512
  3. BUPIVACAINE [Concomitant]
  4. HYDROMORPHONE HCL [Concomitant]
  5. ZANAFLEX [Concomitant]
  6. SYNTHROID [Concomitant]
  7. ZOLOFT [Concomitant]

REACTIONS (4)
  - BLOOD TESTOSTERONE DECREASED [None]
  - DEPRESSION [None]
  - DRUG INEFFECTIVE [None]
  - FEELING ABNORMAL [None]
